FAERS Safety Report 24594806 (Version 3)
Quarter: 2025Q3

REPORT INFORMATION
  Report Type: Spontaneous
  Country: EU (occurrence: EU)
  Receive Date: 20241108
  Receipt Date: 20250923
  Transmission Date: 20251021
  Serious: Yes (Death, Hospitalization, Other)
  Sender: MYLAN
  Company Number: EU-ROCHE-3233114

PATIENT
  Age: 35 Year
  Sex: Male

DRUGS (41)
  1. MYCOPHENOLATE MOFETIL [Suspect]
     Active Substance: MYCOPHENOLATE MOFETIL
     Indication: Prophylaxis against transplant rejection
  2. MYCOPHENOLATE MOFETIL [Suspect]
     Active Substance: MYCOPHENOLATE MOFETIL
     Indication: Prophylaxis against transplant rejection
     Route: 065
  3. MYCOPHENOLATE MOFETIL [Suspect]
     Active Substance: MYCOPHENOLATE MOFETIL
     Indication: Immunosuppressant drug therapy
     Route: 065
  4. MYCOPHENOLATE MOFETIL [Suspect]
     Active Substance: MYCOPHENOLATE MOFETIL
  5. METHYLPREDNISOLONE [Suspect]
     Active Substance: METHYLPREDNISOLONE
     Indication: Prophylaxis against transplant rejection
  6. METHYLPREDNISOLONE [Suspect]
     Active Substance: METHYLPREDNISOLONE
     Indication: Prophylaxis against transplant rejection
     Route: 065
  7. METHYLPREDNISOLONE [Suspect]
     Active Substance: METHYLPREDNISOLONE
     Indication: Immunosuppressant drug therapy
     Route: 065
  8. METHYLPREDNISOLONE [Suspect]
     Active Substance: METHYLPREDNISOLONE
     Indication: Lung transplant
  9. METHYLPREDNISOLONE [Suspect]
     Active Substance: METHYLPREDNISOLONE
     Indication: Immunosuppression
  10. TACROLIMUS [Suspect]
     Active Substance: TACROLIMUS
     Indication: Prophylaxis against transplant rejection
  11. TACROLIMUS [Suspect]
     Active Substance: TACROLIMUS
     Indication: Immunosuppressant drug therapy
     Route: 065
  12. TACROLIMUS [Suspect]
     Active Substance: TACROLIMUS
     Indication: Prophylaxis against transplant rejection
     Route: 065
  13. TACROLIMUS [Suspect]
     Active Substance: TACROLIMUS
     Indication: Lung transplant
  14. BASILIXIMAB [Suspect]
     Active Substance: BASILIXIMAB
     Indication: Prophylaxis against transplant rejection
  15. BASILIXIMAB [Suspect]
     Active Substance: BASILIXIMAB
     Indication: Immunosuppressant drug therapy
     Route: 065
  16. BASILIXIMAB [Suspect]
     Active Substance: BASILIXIMAB
     Indication: Lung transplant
     Route: 065
  17. BASILIXIMAB [Suspect]
     Active Substance: BASILIXIMAB
     Indication: Prophylaxis against transplant rejection
  18. CANCIDAS [Suspect]
     Active Substance: CASPOFUNGIN ACETATE
     Indication: Antifungal prophylaxis
     Route: 065
  19. CANCIDAS [Suspect]
     Active Substance: CASPOFUNGIN ACETATE
  20. CANCIDAS [Suspect]
     Active Substance: CASPOFUNGIN ACETATE
  21. CANCIDAS [Suspect]
     Active Substance: CASPOFUNGIN ACETATE
     Route: 065
  22. CANCIDAS [Suspect]
     Active Substance: CASPOFUNGIN ACETATE
     Route: 065
  23. CANCIDAS [Suspect]
     Active Substance: CASPOFUNGIN ACETATE
  24. CANCIDAS [Suspect]
     Active Substance: CASPOFUNGIN ACETATE
  25. CANCIDAS [Suspect]
     Active Substance: CASPOFUNGIN ACETATE
     Route: 065
  26. PREDNISONE [Suspect]
     Active Substance: PREDNISONE
     Indication: Prophylaxis against transplant rejection
  27. PREDNISONE [Suspect]
     Active Substance: PREDNISONE
     Indication: Prophylaxis against transplant rejection
     Route: 065
  28. PREDNISONE [Suspect]
     Active Substance: PREDNISONE
     Route: 065
  29. PREDNISONE [Suspect]
     Active Substance: PREDNISONE
  30. CEFTAZIDIME [Concomitant]
     Active Substance: CEFTAZIDIME
  31. CEFTAZIDIME [Concomitant]
     Active Substance: CEFTAZIDIME
     Route: 065
  32. CEFTAZIDIME [Concomitant]
     Active Substance: CEFTAZIDIME
     Route: 065
  33. CEFTAZIDIME [Concomitant]
     Active Substance: CEFTAZIDIME
  34. CIPROFLOXACIN [Concomitant]
     Active Substance: CIPROFLOXACIN
  35. CIPROFLOXACIN [Concomitant]
     Active Substance: CIPROFLOXACIN
     Route: 065
  36. CIPROFLOXACIN [Concomitant]
     Active Substance: CIPROFLOXACIN
     Route: 065
  37. CIPROFLOXACIN [Concomitant]
     Active Substance: CIPROFLOXACIN
  38. MEROPENEM [Concomitant]
     Active Substance: MEROPENEM
  39. MEROPENEM [Concomitant]
     Active Substance: MEROPENEM
     Route: 065
  40. MEROPENEM [Concomitant]
     Active Substance: MEROPENEM
     Route: 065
  41. MEROPENEM [Concomitant]
     Active Substance: MEROPENEM

REACTIONS (21)
  - Subcutaneous emphysema [Fatal]
  - Bronchopleural fistula [Fatal]
  - Respiratory disorder [Fatal]
  - Wound dehiscence [Fatal]
  - Trichosporon infection [Fatal]
  - Aspergillus infection [Fatal]
  - Scedosporium infection [Fatal]
  - Systemic mycosis [Fatal]
  - Endocarditis [Fatal]
  - Quadriplegia [Unknown]
  - Amyloidosis [Unknown]
  - Fungal abscess central nervous system [Unknown]
  - Acute hepatic failure [Unknown]
  - Arteritis infective [Unknown]
  - Neurological symptom [Unknown]
  - Pseudomonas infection [Unknown]
  - Somnolence [Unknown]
  - Ascites [Unknown]
  - Coma [Unknown]
  - Off label use [Unknown]
  - Drug ineffective [Unknown]

NARRATIVE: CASE EVENT DATE: 20120101
